FAERS Safety Report 5027297-1 (Version None)
Quarter: 2006Q2

REPORT INFORMATION
  Report Type: 
  Country: None (occurrence: None)
  Receive Date: 20060615
  Receipt Date: 20060605
  Transmission Date: 20061013
  Serious: Yes (Other)
  Sender: FDA-Public Use
  Company Number: US-ABBOTT-06P-163-0335149-00

PATIENT
  Sex: Female

DRUGS (6)
  1. HUMIRA [Suspect]
     Indication: INFERTILITY
     Route: 058
     Dates: start: 20060419, end: 20060509
  2. HUMIRA [Suspect]
     Route: 058
     Dates: start: 20060301, end: 20060418
  3. FOLIC ACID [Concomitant]
     Indication: DRUG USE FOR UNKNOWN INDICATION
     Route: 048
     Dates: start: 20060222, end: 20060602
  4. METHYLPREDNISOLONE [Concomitant]
     Indication: DRUG USE FOR UNKNOWN INDICATION
     Route: 048
     Dates: start: 20060222, end: 20060417
  5. METHYLPREDNISOLONE [Concomitant]
     Route: 048
     Dates: start: 20060418, end: 20060509
  6. FONDAPARINUX [Concomitant]
     Indication: ANTICOAGULANT THERAPY
     Route: 050
     Dates: start: 20060307, end: 20060509

REACTIONS (1)
  - INTRA-UTERINE DEATH [None]
